FAERS Safety Report 6887019-6 (Version None)
Quarter: 2010Q3

REPORT INFORMATION
  Report Type: 
  Country: None (occurrence: None)
  Receive Date: 20100708
  Receipt Date: 20100303
  Transmission Date: 20110219
  Serious: Yes (Other)
  Sender: FDA-Public Use
  Company Number: 2010028167

PATIENT
  Age: 24 Year
  Sex: Male

DRUGS (1)
  1. CHANTIX [Suspect]

REACTIONS (4)
  - FATIGUE [None]
  - HYPERSOMNIA [None]
  - HYPERTENSION [None]
  - MALAISE [None]
